FAERS Safety Report 11717780 (Version 1)
Quarter: 2015Q4

REPORT INFORMATION
  Report Type: Spontaneous
  Country: US (occurrence: None)
  Receive Date: 20151109
  Receipt Date: 20151109
  Transmission Date: 20160304
  Serious: Yes (Hospitalization)
  Sender: FDA-Public Use
  Company Number: None

PATIENT
  Age: 53 Year
  Sex: Female

DRUGS (1)
  1. MACROBID [Suspect]
     Active Substance: NITROFURANTOIN\NITROFURANTOIN MONOHYDRATE
     Dates: start: 2012, end: 20140404

REACTIONS (6)
  - Influenza like illness [None]
  - Abdominal pain upper [None]
  - Fatigue [None]
  - Jaundice [None]
  - Pulmonary congestion [None]
  - Autoimmune hepatitis [None]

NARRATIVE: CASE EVENT DATE: 20140404
